FAERS Safety Report 12840000 (Version 1)
Quarter: 2016Q4

REPORT INFORMATION
  Report Type: Spontaneous
  Country: US (occurrence: US)
  Receive Date: 20161012
  Receipt Date: 20161012
  Transmission Date: 20170207
  Serious: Yes (Other)
  Sender: FDA-Public Use
  Company Number: US-PFIZER INC-2016475880

PATIENT
  Age: 62 Year

DRUGS (2)
  1. LYRICA [Suspect]
     Active Substance: PREGABALIN
     Indication: BACK PAIN
     Dosage: 75 MG, 3X/DAY
     Route: 048
     Dates: start: 20110225
  2. ASPIRIN E.C [Concomitant]
     Active Substance: ASPIRIN
     Indication: CHEST PAIN
     Dosage: 81 MG, DAILY
     Route: 048

REACTIONS (10)
  - Oedema [Unknown]
  - Insomnia [Unknown]
  - Cholesteatoma [Unknown]
  - Suprapubic pain [Unknown]
  - Hypokalaemia [Unknown]
  - Eczema [Unknown]
  - Osteoarthritis [Unknown]
  - Gastrooesophageal reflux disease [Unknown]
  - Acute sinusitis [Unknown]
  - Abdominal pain [Unknown]
